FAERS Safety Report 12613357 (Version 2)
Quarter: 2016Q3

REPORT INFORMATION
  Report Type: Spontaneous
  Country: PL (occurrence: PL)
  Receive Date: 20160802
  Receipt Date: 20160913
  Transmission Date: 20161109
  Serious: Yes (Other)
  Sender: FDA-Public Use
  Company Number: PL-ROCHE-1740343

PATIENT
  Sex: Male

DRUGS (1)
  1. PEGASYS [Suspect]
     Active Substance: PEGINTERFERON ALFA-2A
     Indication: HEPATITIS C
     Dosage: 180MCG/ 0.5ML, RECEIVED 48 ADMINISTRATIONS
     Route: 065
     Dates: start: 20150626, end: 201605

REACTIONS (7)
  - Wrong technique in product usage process [Unknown]
  - Visual acuity reduced [Not Recovered/Not Resolved]
  - Thyroid disorder [Not Recovered/Not Resolved]
  - Hyperthyroidism [Recovered/Resolved]
  - Medication error [Unknown]
  - Hypothyroidism [Recovered/Resolved]
  - Eye pain [Not Recovered/Not Resolved]

NARRATIVE: CASE EVENT DATE: 2016
